FAERS Safety Report 15813487 (Version 1)
Quarter: 2019Q1

REPORT INFORMATION
  Report Type: Spontaneous
  Country: US (occurrence: US)
  Receive Date: 20190111
  Receipt Date: 20190111
  Transmission Date: 20190417
  Serious: No
  Sender: FDA-Public Use
  Company Number: US-PFIZER INC-2017242764

PATIENT
  Age: 12 Year
  Sex: Male
  Weight: 45 kg

DRUGS (9)
  1. GENOTROPIN [Suspect]
     Active Substance: SOMATROPIN
     Dosage: 2.0 MG, DAILY
     Dates: start: 201705
  2. TIMOPTIC [Concomitant]
     Active Substance: TIMOLOL MALEATE
     Indication: GLAUCOMA
     Dosage: UNK
  3. GENOTROPIN [Suspect]
     Active Substance: SOMATROPIN
     Dosage: 1.8 MG, UNK
     Dates: start: 201706
  4. OXCARBAZEPINE. [Concomitant]
     Active Substance: OXCARBAZEPINE
     Dosage: UNK
  5. RITALIN [Concomitant]
     Active Substance: METHYLPHENIDATE HYDROCHLORIDE
     Dosage: UNK
  6. GENOTROPIN [Suspect]
     Active Substance: SOMATROPIN
     Dosage: 1.8 ML, 1X/DAY (AT NIGHT)
     Route: 058
  7. GENOTROPIN [Suspect]
     Active Substance: SOMATROPIN
     Dosage: 0.2 ML, UNK
  8. EFFEXOR [Concomitant]
     Active Substance: VENLAFAXINE HYDROCHLORIDE
     Dosage: UNK
  9. GENOTROPIN [Suspect]
     Active Substance: SOMATROPIN
     Indication: GROWTH RETARDATION
     Dosage: 1.6 MG, DAILY
     Dates: start: 20170521

REACTIONS (4)
  - Product dose omission [Unknown]
  - Device issue [Unknown]
  - Wrong technique in device usage process [Unknown]
  - Weight decreased [Recovered/Resolved]

NARRATIVE: CASE EVENT DATE: 20170530
